FAERS Safety Report 4443307-4 (Version None)
Quarter: 2004Q3

REPORT INFORMATION
  Report Type: 
  Country: None (occurrence: None)
  Receive Date: 20040907
  Receipt Date: 20040907
  Transmission Date: 20050211
  Serious: Yes (Hospitalization)
  Sender: FDA-Public Use
  Company Number: None

PATIENT
  Age: 75 Year
  Sex: Male
  Weight: 68 kg

DRUGS (8)
  1. WARFARIN SODIUM [Suspect]
     Dosage: 5 MG HS, BY MOUTH
     Route: 048
     Dates: start: 20040315, end: 20040406
  2. DILTIAZEM (TIAZAC) [Concomitant]
  3. FUROSEMIDE [Concomitant]
  4. IRBESARTAN [Concomitant]
  5. NITROGLYCERIN [Concomitant]
  6. LORATADINE [Concomitant]
  7. MULTI-VITAMIN [Concomitant]
  8. NIACIN [Concomitant]

REACTIONS (2)
  - EPISTAXIS [None]
  - INTERNATIONAL NORMALISED RATIO INCREASED [None]
